FAERS Safety Report 18779489 (Version 1)
Quarter: 2021Q1

REPORT INFORMATION
  Report Type: Spontaneous
  Country: US (occurrence: US)
  Receive Date: 20210125
  Receipt Date: 20210125
  Transmission Date: 20210419
  Serious: No
  Sender: FDA-Public Use
  Company Number: US-SA-2021SA021735

PATIENT
  Age: 29 Year
  Sex: Male

DRUGS (7)
  1. DUPIXENT [Suspect]
     Active Substance: DUPILUMAB
     Indication: NASAL POLYPS
     Dosage: 300 MG, QOW
     Route: 058
     Dates: start: 202009
  2. MAGNESIUM [Concomitant]
     Active Substance: MAGNESIUM
  3. MACA ROOT [Concomitant]
  4. KRILL OIL [Concomitant]
     Active Substance: DIETARY SUPPLEMENT\KRILL OIL
     Dosage: 250MG
  5. MELATONIN [Concomitant]
     Active Substance: MELATONIN
     Dosage: 300MG
  6. TRAZODONE HYDROCHLORIDE. [Concomitant]
     Active Substance: TRAZODONE HYDROCHLORIDE
  7. COLLAGEN [Concomitant]
     Active Substance: COLLAGEN

REACTIONS (1)
  - Injection site urticaria [Unknown]

NARRATIVE: CASE EVENT DATE: 202011
